FAERS Safety Report 24536892 (Version 1)
Quarter: 2024Q4

REPORT INFORMATION
  Report Type: Spontaneous
  Country: AU (occurrence: AU)
  Receive Date: 20241022
  Receipt Date: 20241022
  Transmission Date: 20250114
  Serious: Yes (Hospitalization)
  Sender: TASMAN PHARMA
  Company Number: AU-TASMAN PHARMA, INC.-2024TSM00239

PATIENT
  Sex: Male

DRUGS (8)
  1. VERSACLOZ [Suspect]
     Active Substance: CLOZAPINE
     Dosage: 700 MG
     Dates: start: 20230724, end: 20230820
  2. VERSACLOZ [Suspect]
     Active Substance: CLOZAPINE
     Dosage: 700 MG
     Dates: start: 20231113, end: 20231210
  3. VERSACLOZ [Suspect]
     Active Substance: CLOZAPINE
     Dosage: 700 MG
     Dates: start: 20240108, end: 20240204
  4. VERSACLOZ [Suspect]
     Active Substance: CLOZAPINE
     Dosage: 700 MG
     Dates: start: 20240530, end: 20240624
  5. CLOZAPINE [Suspect]
     Active Substance: CLOZAPINE
     Dosage: 700 MG
     Dates: start: 20230821, end: 20231112
  6. CLOZAPINE [Suspect]
     Active Substance: CLOZAPINE
     Dosage: 700 MG
     Dates: start: 20231211, end: 20240107
  7. CLOZAPINE [Suspect]
     Active Substance: CLOZAPINE
     Dosage: 700 MG
     Dates: start: 20240205, end: 20240529
  8. CLOZAPINE [Suspect]
     Active Substance: CLOZAPINE
     Dosage: 700 MG
     Dates: start: 20240625

REACTIONS (1)
  - Hospitalisation [Unknown]
